FAERS Safety Report 6248289-0 (Version None)
Quarter: 2009Q2

REPORT INFORMATION
  Report Type: 
  Country: None (occurrence: None)
  Receive Date: 20090629
  Receipt Date: 20090617
  Transmission Date: 20091009
  Serious: Yes (Other)
  Sender: FDA-Public Use
  Company Number: PHEH2008US03989

PATIENT
  Sex: Male

DRUGS (6)
  1. AREDIA [Suspect]
  2. ZOMETA [Suspect]
  3. CHEMOTHERAPEUTICS NOS [Concomitant]
  4. RADIATION THERAPY [Concomitant]
     Dosage: UNK
  5. PREDNISONE TAB [Concomitant]
  6. ALKERAN [Concomitant]

REACTIONS (41)
  - ANAEMIA [None]
  - ANXIETY [None]
  - AORTIC STENOSIS [None]
  - AORTIC VALVE REPLACEMENT [None]
  - BENIGN PROSTATIC HYPERPLASIA [None]
  - BLOOD PRESSURE DIASTOLIC DECREASED [None]
  - BONE DISORDER [None]
  - CARDIAC FAILURE CONGESTIVE [None]
  - CARDIAC VALVE DISEASE [None]
  - CORONARY ARTERY BYPASS [None]
  - CORONARY ARTERY DISEASE [None]
  - CYST [None]
  - CYST REMOVAL [None]
  - DEPRESSION [None]
  - DYSPNOEA [None]
  - DYSURIA [None]
  - EATING DISORDER [None]
  - EMOTIONAL DISTRESS [None]
  - EPISTAXIS [None]
  - FALL [None]
  - HERPES ZOSTER [None]
  - HYPONATRAEMIA [None]
  - INFECTION [None]
  - INJURY [None]
  - LOSS OF CONSCIOUSNESS [None]
  - MUSCULOSKELETAL DISCOMFORT [None]
  - NEUROPATHY PERIPHERAL [None]
  - NOCTURIA [None]
  - OSTEONECROSIS [None]
  - PAIN [None]
  - PANCYTOPENIA [None]
  - PARANASAL SINUS HYPERSECRETION [None]
  - PERIORBITAL HAEMATOMA [None]
  - PHYSICAL DISABILITY [None]
  - PRODUCTIVE COUGH [None]
  - RESPIRATORY FAILURE [None]
  - ROTATOR CUFF SYNDROME [None]
  - SCAR [None]
  - TOOTH EXTRACTION [None]
  - VENTRICULAR DYSFUNCTION [None]
  - WALKING AID USER [None]
